FAERS Safety Report 9579049 (Version 1)
Quarter: 2013Q4

REPORT INFORMATION
  Report Type: Spontaneous
  Country: US (occurrence: US)
  Receive Date: 20131001
  Receipt Date: 20131001
  Transmission Date: 20140711
  Serious: No
  Sender: FDA-Public Use
  Company Number: US-AMGEN-USASP2013016126

PATIENT
  Sex: Female

DRUGS (10)
  1. ENBREL [Suspect]
     Indication: RHEUMATOID ARTHRITIS
     Dosage: 50 MG, EVERY SEVEN DAYS
     Route: 058
  2. METHOTREXATE [Concomitant]
     Dosage: 2.5 MG, UNK
  3. QUINAPRIL [Concomitant]
     Dosage: 20 MG, UNK
  4. FOLIC ACID [Concomitant]
     Dosage: 1 MG, UNK
  5. ESTRADIOL [Concomitant]
     Dosage: 0.037 MG, UNK
  6. PLAVIX [Concomitant]
     Dosage: 75 MG, UNK
  7. THYROID [Concomitant]
     Dosage: 120 MG, UNK
  8. VITAMIN D                          /00107901/ [Concomitant]
     Dosage: 1000 UNIT, UNK
  9. ORPHENADRINE [Concomitant]
     Dosage: 100 MG, UNK
  10. HYDROCODONE/APAP [Concomitant]
     Dosage: 7.5-325

REACTIONS (1)
  - Injection site pain [Unknown]
